FAERS Safety Report 22057610 (Version 1)
Quarter: 2023Q1

REPORT INFORMATION
  Report Type: Spontaneous
  Country: US (occurrence: US)
  Receive Date: 20230303
  Receipt Date: 20230303
  Transmission Date: 20230418
  Serious: Yes (Death, Other)
  Sender: FDA-Public Use
  Company Number: US-AUROBINDO-AUR-APL-2023-009156

PATIENT
  Age: 14 Year
  Sex: Female

DRUGS (1)
  1. DIPHENHYDRAMINE [Suspect]
     Active Substance: DIPHENHYDRAMINE
     Indication: Product used for unknown indication
     Dosage: UNK
     Route: 065

REACTIONS (8)
  - Coma [Fatal]
  - Depressed level of consciousness [Fatal]
  - Electrocardiogram QT prolonged [Fatal]
  - Electrocardiogram QRS complex prolonged [Fatal]
  - Seizure [Fatal]
  - Ventricular arrhythmia [Fatal]
  - Tachycardia [Fatal]
  - Toxicity to various agents [Fatal]
